FAERS Safety Report 6230742-7 (Version None)
Quarter: 2009Q2

REPORT INFORMATION
  Report Type: 
  Country: None (occurrence: None)
  Receive Date: 20090616
  Receipt Date: 20090521
  Transmission Date: 20091009
  Serious: No
  Sender: FDA-Public Use
  Company Number: BR-EISAI INC.-E3810-02861-SPO-BR

PATIENT
  Age: 46 Year
  Sex: Female
  Weight: 68 kg

DRUGS (1)
  1. PARIET (RABEPRAZOLE) [Suspect]
     Route: 048
     Dates: start: 20090520, end: 20090520

REACTIONS (6)
  - DYSPNOEA [None]
  - GENERALISED ERYTHEMA [None]
  - HAEMORRHAGE [None]
  - PHARYNGEAL OEDEMA [None]
  - PRURITUS GENERALISED [None]
  - SKIN SWELLING [None]
